FAERS Safety Report 26191031 (Version 1)
Quarter: 2025Q4

REPORT INFORMATION
  Report Type: Spontaneous
  Country: JP (occurrence: JP)
  Receive Date: 20251223
  Receipt Date: 20251223
  Transmission Date: 20260117
  Serious: Yes (Other)
  Sender: ROCHE
  Company Number: JP-CHUGAI-2025042075

PATIENT
  Age: 8 Decade
  Sex: Male

DRUGS (1)
  1. LUNSUMIO [Suspect]
     Active Substance: MOSUNETUZUMAB-AXGB
     Indication: Follicular lymphoma
     Dosage: 1 MILLIGRAM
     Route: 041

REACTIONS (1)
  - Hepatic function abnormal [Recovering/Resolving]

NARRATIVE: CASE EVENT DATE: 20251210
